FAERS Safety Report 9105363 (Version 4)
Quarter: 2014Q2

REPORT INFORMATION
  Report Type: Report from Study
  Country: JP (occurrence: JP)
  Receive Date: 20130220
  Receipt Date: 20140404
  Transmission Date: 20141212
  Serious: Yes (Other)
  Sender: FDA-Public Use
  Company Number: JP-GLAXOSMITHKLINE-B0868024A

PATIENT
  Age: 77 Year
  Sex: Male
  Weight: 57 kg

DRUGS (8)
  1. LAMICTAL [Suspect]
     Indication: COMPLEX PARTIAL SEIZURES
     Dosage: 25MG PER DAY
     Route: 048
     Dates: start: 20120628, end: 20120712
  2. LAMICTAL [Suspect]
     Indication: COMPLEX PARTIAL SEIZURES
     Dosage: 25MG PER DAY
     Route: 048
     Dates: start: 20120713
  3. DEPAKENE-R [Suspect]
     Indication: COMPLEX PARTIAL SEIZURES
     Route: 048
     Dates: start: 19971212, end: 20000501
  4. DEPAKENE-R [Suspect]
     Indication: COMPLEX PARTIAL SEIZURES
     Route: 048
     Dates: start: 20000502
  5. DEZOLAM [Suspect]
     Route: 048
  6. AMOBAN [Suspect]
     Route: 048
  7. DOGMATYL [Suspect]
     Route: 048
  8. METHYCOBAL [Suspect]
     Route: 048

REACTIONS (3)
  - Hyperbilirubinaemia [Recovered/Resolved]
  - Renal impairment [Recovered/Resolved]
  - Lymphocyte count decreased [Recovered/Resolved]
